FAERS Safety Report 15683254 (Version 2)
Quarter: 2019Q1

REPORT INFORMATION
  Report Type: Spontaneous
  Country: ES (occurrence: ES)
  Receive Date: 20181204
  Receipt Date: 20190328
  Transmission Date: 20190417
  Serious: Yes (Other)
  Sender: FDA-Public Use
  Company Number: ES-SUN PHARMACEUTICAL INDUSTRIES LTD-2018RR-192393

PATIENT
  Age: 4 Decade
  Sex: Female

DRUGS (7)
  1. TEMOZOLOMIDE. [Suspect]
     Active Substance: TEMOZOLOMIDE
     Indication: DISEASE PROGRESSION
     Dosage: 200 MILLIGRAM/SQ. METER, DAILY, ON DAYS 1-5 IN 28-DAY CYCLES
     Route: 065
     Dates: end: 201507
  2. DENOSUMAB [Suspect]
     Active Substance: DENOSUMAB
     Indication: DISEASE PROGRESSION
     Dosage: 120 MILLIGRAM, MONTHLY
     Route: 065
     Dates: end: 201507
  3. CAPECITABINE. [Concomitant]
     Active Substance: CAPECITABINE
     Indication: DISEASE PROGRESSION
     Dosage: 750 MILLIGRAM/SQ. METER, BID, ON DAYS 1-14
     Route: 065
  4. TEMOZOLOMIDE. [Suspect]
     Active Substance: TEMOZOLOMIDE
     Dosage: 75 MILLIGRAM/SQ. METER(21/28-DAY REGIMEN)
     Route: 065
     Dates: start: 201509, end: 201703
  5. DENOSUMAB [Suspect]
     Active Substance: DENOSUMAB
     Dosage: 120 MILLIGRAM, EVERY 14 DAYS
     Dates: start: 201509, end: 201703
  6. SOMATULINE AUTOGEL [Suspect]
     Active Substance: LANREOTIDE ACETATE
     Indication: PARAGANGLION NEOPLASM
     Dosage: 120 MILLIGRAM
     Route: 065
     Dates: start: 201309, end: 201507
  7. SOMATULINE AUTOGEL [Suspect]
     Active Substance: LANREOTIDE ACETATE
     Dosage: 120 MILLIGRAM, EVERY 14 DAYS
     Route: 065
     Dates: start: 201509, end: 201703

REACTIONS (4)
  - Disease progression [Unknown]
  - Drug effect incomplete [Unknown]
  - Therapeutic response unexpected [Unknown]
  - Lymphopenia [Unknown]
